FAERS Safety Report 6735939-5 (Version None)
Quarter: 2010Q2

REPORT INFORMATION
  Report Type: 
  Country: None (occurrence: None)
  Receive Date: 20100521
  Receipt Date: 20100518
  Transmission Date: 20101027
  Serious: Yes (Hospitalization)
  Sender: FDA-Public Use
  Company Number: B0652192A

PATIENT
  Age: 64 Year
  Sex: Male

DRUGS (7)
  1. AUGMENTIN '125' [Suspect]
     Indication: DRUG USE FOR UNKNOWN INDICATION
     Dosage: 1G THREE TIMES PER DAY
     Route: 048
     Dates: start: 20100225, end: 20100304
  2. EUPRESSYL [Suspect]
     Indication: DRUG USE FOR UNKNOWN INDICATION
     Dosage: 30MG TWICE PER DAY
     Route: 048
     Dates: start: 20100210, end: 20100304
  3. ATARAX [Suspect]
     Indication: DRUG USE FOR UNKNOWN INDICATION
     Dosage: 25MG PER DAY
     Route: 048
     Dates: start: 20100211, end: 20100304
  4. LEXOMIL [Suspect]
     Indication: DRUG USE FOR UNKNOWN INDICATION
     Route: 048
     Dates: start: 20100209, end: 20100304
  5. COVERSYL [Suspect]
     Indication: DRUG USE FOR UNKNOWN INDICATION
     Dosage: 2.5MG PER DAY
     Route: 048
     Dates: start: 20100216, end: 20100304
  6. TIAPRIDAL [Suspect]
     Indication: DRUG USE FOR UNKNOWN INDICATION
     Route: 048
     Dates: start: 20100219, end: 20100304
  7. TOPALGIC ( FRANCE ) [Suspect]
     Indication: DRUG USE FOR UNKNOWN INDICATION
     Dosage: 50MG THREE TIMES PER DAY
     Route: 048
     Dates: start: 20100201, end: 20100224

REACTIONS (2)
  - LEUKOCYTOCLASTIC VASCULITIS [None]
  - VASCULAR PURPURA [None]
